FAERS Safety Report 21092954 (Version 18)
Quarter: 2023Q4

REPORT INFORMATION
  Report Type: Spontaneous
  Country: CA (occurrence: CA)
  Receive Date: 20220718
  Receipt Date: 20231213
  Transmission Date: 20240110
  Serious: Yes (Other)
  Sender: FDA-Public Use
  Company Number: CA-CELLTRION INC.-2022CA006117

PATIENT

DRUGS (12)
  1. INFLECTRA [Suspect]
     Active Substance: INFLIXIMAB-DYYB
     Indication: Crohn^s disease
     Dosage: 5 MG/KG, EVERY 8 WEEKS (WEEKS 0, 2, 6 THEN Q 8 WEEKSROUNDED TO NEAREST 100)
     Route: 042
     Dates: start: 20220118
  2. INFLECTRA [Suspect]
     Active Substance: INFLIXIMAB-DYYB
     Dosage: 5 MG/KG, EVERY 8 WEEKS (WEEKS 0, 2, 6 THEN Q 8 WEEKSROUNDED TO NEAREST 100)
     Route: 042
     Dates: start: 20220301
  3. INFLECTRA [Suspect]
     Active Substance: INFLIXIMAB-DYYB
     Dosage: 5 MG/KG, EVERY 8 WEEKS (WEEKS 0, 2, 6 THEN Q 8 WEEKSROUNDED TO NEAREST 100)
     Route: 042
     Dates: start: 20220722
  4. INFLECTRA [Suspect]
     Active Substance: INFLIXIMAB-DYYB
     Dosage: 5 MG/KG, EVERY 8 WEEKS (WEEKS 0, 2, 6 THEN Q 8 WEEKSROUNDED TO NEAREST 100)
     Route: 042
     Dates: start: 20220913, end: 20220913
  5. INFLECTRA [Suspect]
     Active Substance: INFLIXIMAB-DYYB
     Dosage: 5 MG/KG, EVERY 8 WEEKS (WEEKS 0, 2, 6 THEN Q 8 WEEKSROUNDED TO NEAREST 100)
     Route: 042
     Dates: start: 20221123, end: 20221123
  6. INFLECTRA [Suspect]
     Active Substance: INFLIXIMAB-DYYB
     Dosage: 5 MG/KG, EVERY 8 WEEKS
     Route: 042
     Dates: start: 20230201
  7. INFLECTRA [Suspect]
     Active Substance: INFLIXIMAB-DYYB
     Dosage: 7.5 MG/KG (400 MG), EVERY 7 WEEKS
     Route: 042
     Dates: start: 20230329
  8. INFLECTRA [Suspect]
     Active Substance: INFLIXIMAB-DYYB
     Dosage: 7.5 MG/KG, EVERY 7 WEEKS
     Route: 042
     Dates: start: 20230518
  9. ASACOL [Concomitant]
     Active Substance: MESALAMINE
     Dosage: 1 DF (DOSAGE NOT AVAILABLE)
     Route: 065
  10. ASACOL [Concomitant]
     Active Substance: MESALAMINE
     Dosage: 1 DF (DOSAGE NOT AVAILABLE)
     Route: 065
     Dates: start: 20220117
  11. MESALAMINE [Concomitant]
     Active Substance: MESALAMINE
     Dosage: 1 DF (DOSAGE NOT AVAILABLE)
     Route: 054
  12. SULFADIAZINE\TRIMETHOPRIM [Concomitant]
     Active Substance: SULFADIAZINE\TRIMETHOPRIM
     Dosage: 1 DF

REACTIONS (28)
  - Head discomfort [Recovered/Resolved]
  - Hot flush [Recovered/Resolved]
  - Chest discomfort [Recovered/Resolved]
  - Dyspnoea [Recovered/Resolved]
  - Blood pressure increased [Not Recovered/Not Resolved]
  - Condition aggravated [Recovered/Resolved]
  - Haematochezia [Not Recovered/Not Resolved]
  - Urinary tract infection [Not Recovered/Not Resolved]
  - Urinary tract infection bacterial [Recovered/Resolved]
  - Drug ineffective [Unknown]
  - Drug level decreased [Unknown]
  - Drug specific antibody present [Unknown]
  - Pyrexia [Recovered/Resolved]
  - Chills [Unknown]
  - Fatigue [Unknown]
  - General physical health deterioration [Recovering/Resolving]
  - Infection [Unknown]
  - Inflammation [Not Recovered/Not Resolved]
  - Bladder disorder [Unknown]
  - Asthenia [Not Recovered/Not Resolved]
  - Chest discomfort [Recovered/Resolved]
  - Flushing [Recovered/Resolved]
  - Urine abnormality [Not Recovered/Not Resolved]
  - Discouragement [Unknown]
  - Off label use [Unknown]
  - Off label use [Unknown]
  - Intentional product use issue [Unknown]
  - Inappropriate schedule of product administration [Unknown]

NARRATIVE: CASE EVENT DATE: 20220101
